FAERS Safety Report 5801864-7 (Version None)
Quarter: 2008Q3

REPORT INFORMATION
  Report Type: 
  Country: None (occurrence: None)
  Receive Date: 20080702
  Receipt Date: 20080624
  Transmission Date: 20090109
  Serious: Yes (Other)
  Sender: FDA-Public Use
  Company Number: 08H-167-0314400-00

PATIENT
  Sex: Male

DRUGS (5)
  1. PROPOFOL [Suspect]
     Indication: GENERAL ANAESTHESIA
     Dosage: 200 MG, ONCE, NOT REPORTED
  2. 0.5% LEVOBUPIVACAINE (LEVOBUPIVACAINE) [Suspect]
     Indication: NEUROMUSCULAR BLOCKADE
     Dosage: 30 ML, PERINEURAL
     Route: 053
  3. FENTANYL [Suspect]
     Indication: GENERAL ANAESTHESIA
     Dosage: 50 MCG, ONCE, NOT REPORTED
  4. OXYGEN (OXYGEN) [Concomitant]
  5. SEVOFLURANE [Concomitant]

REACTIONS (11)
  - ASTHENIA [None]
  - DYSARTHRIA [None]
  - HEMIPLEGIA [None]
  - HYPOAESTHESIA [None]
  - MIGRAINE WITH AURA [None]
  - MOVEMENT DISORDER [None]
  - MUSCULAR WEAKNESS [None]
  - NERVOUS SYSTEM DISORDER [None]
  - PARALYSIS FLACCID [None]
  - SENSORY LOSS [None]
  - SPEECH DISORDER [None]
